FAERS Safety Report 8483468-3 (Version None)
Quarter: 2012Q3

REPORT INFORMATION
  Report Type: 
  Country: None (occurrence: None)
  Receive Date: 20120702
  Receipt Date: 20120625
  Transmission Date: 20120928
  Serious: Yes (Hospitalization)
  Sender: FDA-Public Use
  Company Number: FR-ALLERGAN-1208843US

PATIENT
  Age: 23 Year
  Sex: Female

DRUGS (1)
  1. BOTOX [Suspect]
     Indication: HEMIPARESIS
     Dosage: 500 UNITS, SINGLE
     Route: 030
     Dates: start: 20120605, end: 20120605

REACTIONS (5)
  - PYREXIA [None]
  - MUSCLE SPASMS [None]
  - ABDOMINAL PAIN [None]
  - VOMITING [None]
  - FATIGUE [None]
